FAERS Safety Report 11767632 (Version 1)
Quarter: 2015Q4

REPORT INFORMATION
  Report Type: Report from Study
  Country: BR (occurrence: BR)
  Receive Date: 20151123
  Receipt Date: 20151123
  Transmission Date: 20160304
  Serious: Yes (Other)
  Sender: FDA-Public Use
  Company Number: PHHY2015BR152389

PATIENT
  Sex: Female
  Weight: 54 kg

DRUGS (1)
  1. SANDOSTATIN LAR DEPOT [Suspect]
     Active Substance: OCTREOTIDE ACETATE
     Indication: ACROMEGALY
     Dosage: 20 MG, EVERY 6 WEEKS
     Route: 065

REACTIONS (8)
  - Plasma cell myeloma [Unknown]
  - Balance disorder [Unknown]
  - Swelling [Unknown]
  - Meningitis [Unknown]
  - Amnesia [Unknown]
  - Hypertension [Unknown]
  - Inappropriate schedule of drug administration [Unknown]
  - Deafness unilateral [Unknown]
